FAERS Safety Report 6529200-1 (Version None)
Quarter: 2010Q1

REPORT INFORMATION
  Report Type: 
  Country: None (occurrence: None)
  Receive Date: 20100107
  Receipt Date: 20091228
  Transmission Date: 20100710
  Serious: Yes (Hospitalization)
  Sender: FDA-Public Use
  Company Number: FR-ELI_LILLY_AND_COMPANY-FR200910003433

PATIENT
  Age: 86 Year
  Sex: Female
  Weight: 38 kg

DRUGS (3)
  1. FORTEO [Suspect]
     Indication: OSTEOPOROSIS
     Dosage: 20 UG, DAILY (1/D)
     Route: 058
     Dates: start: 20080905, end: 20090727
  2. FORTEO [Suspect]
     Dosage: UNK, UNKNOWN
     Route: 065
     Dates: start: 20091007
  3. DEROXAT [Concomitant]
     Indication: DEPRESSION
     Dosage: UNK, UNKNOWN
     Route: 048
     Dates: end: 20090727

REACTIONS (4)
  - DEMENTIA [None]
  - DEPRESSION [None]
  - DISORIENTATION [None]
  - SUICIDE ATTEMPT [None]
